FAERS Safety Report 9740573 (Version 1)
Quarter: 2013Q4

REPORT INFORMATION
  Report Type: Spontaneous
  Country: US (occurrence: US)
  Receive Date: 20131209
  Receipt Date: 20131209
  Transmission Date: 20140711
  Serious: No
  Sender: FDA-Public Use
  Company Number: US-BIOGENIDEC-2013BI092699

PATIENT
  Age: 68 Year
  Sex: Female

DRUGS (5)
  1. TECFIDERA [Suspect]
     Indication: MULTIPLE SCLEROSIS
     Route: 048
  2. TOVIAZ [Concomitant]
  3. LOSARTAN [Concomitant]
  4. POTASSIUM [Concomitant]
  5. ZETIA [Concomitant]

REACTIONS (1)
  - Urinary tract infection [Unknown]
